FAERS Safety Report 4691933-X (Version None)
Quarter: 2005Q2

REPORT INFORMATION
  Report Type: 
  Country: None (occurrence: None)
  Receive Date: 20050614
  Receipt Date: 20050601
  Transmission Date: 20051028
  Serious: Yes (Other)
  Sender: FDA-Public Use
  Company Number: HQWYE262206JUN05

PATIENT
  Age: 96 Year
  Sex: Male

DRUGS (3)
  1. EFFEXOR XR [Suspect]
     Dosage: SEE IMAGE
     Dates: start: 19990101, end: 19990101
  2. EFFEXOR XR [Suspect]
     Dosage: SEE IMAGE
     Dates: start: 20050101, end: 20050101
  3. EFFEXOR XR [Suspect]
     Dosage: SEE IMAGE
     Dates: start: 20050101

REACTIONS (3)
  - DRUG TOXICITY [None]
  - THERAPY NON-RESPONDER [None]
  - UNEVALUABLE EVENT [None]
